FAERS Safety Report 10705658 (Version 3)
Quarter: 2015Q2

REPORT INFORMATION
  Report Type: Spontaneous
  Country: US (occurrence: US)
  Receive Date: 20150112
  Receipt Date: 20150417
  Transmission Date: 20150821
  Serious: No
  Sender: FDA-Public Use
  Company Number: US-GLAXOSMITHKLINE-A1090069A

PATIENT

DRUGS (1)
  1. PROMACTA [Suspect]
     Active Substance: ELTROMBOPAG OLAMINE
     Indication: THROMBOCYTOPENIA
     Dosage: 3 TIMES PER WEEK, MONDAY, WEDNESDAY, FRIDAY
     Route: 065
     Dates: start: 20140808

REACTIONS (2)
  - Rash pruritic [Unknown]
  - Rash [Unknown]
